FAERS Safety Report 20991693 (Version 1)
Quarter: 2022Q2

REPORT INFORMATION
  Report Type: Spontaneous
  Country: US (occurrence: US)
  Receive Date: 20220622
  Receipt Date: 20220622
  Transmission Date: 20220720
  Serious: No
  Sender: FDA-Public Use
  Company Number: US-JNJFOC-20220619225

PATIENT
  Age: 59 Year
  Sex: Female
  Weight: 116.12 kg

DRUGS (3)
  1. TYLENOL [Suspect]
     Active Substance: ACETAMINOPHEN
     Indication: Headache
     Route: 065
  2. TYLENOL [Suspect]
     Active Substance: ACETAMINOPHEN
     Indication: Pyrexia
  3. COVID-19 VACCINE [Concomitant]
     Indication: Immunisation
     Route: 065

REACTIONS (1)
  - Vomiting [Unknown]
